FAERS Safety Report 19395732 (Version 3)
Quarter: 2021Q3

REPORT INFORMATION
  Report Type: Report from Study
  Country: NL (occurrence: NL)
  Receive Date: 20210609
  Receipt Date: 20210713
  Transmission Date: 20211014
  Serious: Yes (Hospitalization)
  Sender: FDA-Public Use
  Company Number: NL-TAIHO ONCOLOGY  INC-IM-2021-00261

PATIENT
  Age: 64 Year
  Sex: Male
  Weight: 128 kg

DRUGS (24)
  1. BEVACIZUMAB. [Suspect]
     Active Substance: BEVACIZUMAB
     Dosage: 647.5 MG (5 MG/KG), ON DAYS 1 AND 15 OF EACH 28?DAY CYCLE
     Route: 042
     Dates: start: 20210407, end: 20210421
  2. XARELTO [Concomitant]
     Active Substance: RIVAROXABAN
     Indication: COAGULOPATHY
     Dosage: 20 MG, QD
     Route: 048
     Dates: start: 20200714, end: 20210514
  3. GLICLAZIDE MYLAN [Concomitant]
     Active Substance: GLICLAZIDE
     Indication: DIABETES MELLITUS
     Dosage: 80 MG, BID
     Route: 048
     Dates: start: 20200714
  4. LONSURF [Suspect]
     Active Substance: TIPIRACIL HYDROCHLORIDE\TRIFLURIDINE
     Dosage: 80 MG (35 MG/M2), BID, ON DAYS 1?5 AND 8?12 OF EACH 28?DAY CYCLE
     Route: 048
     Dates: start: 20210127, end: 20210207
  5. BEVACIZUMAB. [Suspect]
     Active Substance: BEVACIZUMAB
     Indication: RECTAL ADENOCARCINOMA
     Dosage: 640 MG (5 MG/KG), ON DAYS 1 AND 15 OF EACH 28?DAY CYCLE
     Route: 042
     Dates: start: 20200819, end: 20201104
  6. SIMVASTATIN SANDOZ [Concomitant]
     Active Substance: SIMVASTATIN
     Indication: HYPERCHOLESTEROLAEMIA
     Dosage: 40 MG, QD
     Route: 048
     Dates: start: 20200714
  7. METOPROLOL SUCCINATE. [Concomitant]
     Active Substance: METOPROLOL SUCCINATE
     Indication: HYPERTENSION
     Dosage: 50 MG, QD
     Route: 048
     Dates: start: 20200714
  8. LONSURF [Suspect]
     Active Substance: TIPIRACIL HYDROCHLORIDE\TRIFLURIDINE
     Indication: RECTAL ADENOCARCINOMA
     Dosage: 80 MG (35 MG/M2), BID, ON DAYS 1?5 AND 8?12 OF EACH 28?DAY CYCLE
     Route: 048
     Dates: start: 20200819, end: 20201101
  9. OMEPRAZOLE. [Concomitant]
     Active Substance: OMEPRAZOLE
     Indication: GASTRIC PH DECREASED
     Dosage: 20 MG, QD
     Route: 048
     Dates: start: 20200714
  10. METFORMIN HYDROCHLORIDE. [Concomitant]
     Active Substance: METFORMIN HYDROCHLORIDE
     Indication: DIABETES MELLITUS
     Dosage: 1000 MG, BID
     Route: 048
     Dates: start: 20200714
  11. LONSURF [Suspect]
     Active Substance: TIPIRACIL HYDROCHLORIDE\TRIFLURIDINE
     Dosage: 80 MG (35 MG/M2), BID, ON DAYS 1?5 AND 8?12 OF EACH 28?DAY CYCLE
     Route: 048
     Dates: start: 20201125, end: 20210103
  12. LONSURF [Suspect]
     Active Substance: TIPIRACIL HYDROCHLORIDE\TRIFLURIDINE
     Dosage: 70 MG (30 MG/M2), BID, ON DAYS 1?5 AND 8?12 OF EACH 28?DAY CYCLE
     Route: 048
     Dates: start: 20210512, end: 20210515
  13. BEVACIZUMAB. [Suspect]
     Active Substance: BEVACIZUMAB
     Dosage: 635 MG (5 MG/KG), ON DAYS 1 AND 15 OF EACH 28?DAY CYCLE
     Route: 042
     Dates: start: 20210127, end: 20210210
  14. CETOMACROGOL [Concomitant]
     Active Substance: COSMETICS
     Indication: DRY SKIN
     Dosage: 4 DF, PRN
     Route: 062
     Dates: start: 20200817
  15. INSULIN ISOPHANE BOVINE [Concomitant]
     Active Substance: INSULIN BEEF
     Indication: DIABETES MELLITUS
     Dosage: 10 IU, QD
     Route: 051
     Dates: start: 20200812
  16. LONSURF [Suspect]
     Active Substance: TIPIRACIL HYDROCHLORIDE\TRIFLURIDINE
     Dosage: 70 MG (30 MG/M2), BID, ON DAYS 1?5 AND 8?12 OF EACH 28?DAY CYCLE
     Route: 048
     Dates: start: 20210407, end: 20210418
  17. BEVACIZUMAB. [Suspect]
     Active Substance: BEVACIZUMAB
     Dosage: 635 MG (5 MG/KG), ON DAYS 1 AND 15 OF EACH 28?DAY CYCLE
     Route: 042
     Dates: start: 20210512, end: 20210512
  18. LOSARTAN POTASSIUM. [Concomitant]
     Active Substance: LOSARTAN POTASSIUM
     Indication: PROPHYLAXIS
     Dosage: 100 MG, QD
     Route: 048
     Dates: start: 20200714
  19. FLECAINIDE ACETATE. [Concomitant]
     Active Substance: FLECAINIDE ACETATE
     Indication: HEART RATE INCREASED
     Dosage: 200 MG, QD
     Route: 048
     Dates: start: 20200714
  20. LONSURF [Suspect]
     Active Substance: TIPIRACIL HYDROCHLORIDE\TRIFLURIDINE
     Dosage: 70 MG (30 MG/M2), BID, ON DAYS 1?5 AND 8?12 OF EACH 28?DAY CYCLE
     Route: 048
     Dates: start: 20210303, end: 20210314
  21. BEVACIZUMAB. [Suspect]
     Active Substance: BEVACIZUMAB
     Dosage: 637.5 MG (5 MG/KG), ON DAYS 1 AND 15 OF EACH 28?DAY CYCLE
     Route: 042
     Dates: start: 20201125, end: 20210106
  22. BEVACIZUMAB. [Suspect]
     Active Substance: BEVACIZUMAB
     Dosage: 625 MG (5 MG/KG), ON DAYS 1 AND 15 OF EACH 28?DAY CYCLE
     Route: 042
     Dates: start: 20210303, end: 20210317
  23. METOCLOPRAMIDE HYDROCHLORIDE. [Concomitant]
     Active Substance: METOCLOPRAMIDE HYDROCHLORIDE
     Indication: ANTIEMETIC SUPPORTIVE CARE
     Dosage: 10 MG, PRN
     Route: 048
     Dates: start: 20200817
  24. HYDROCHLOROTHIAZIDE. [Concomitant]
     Active Substance: HYDROCHLOROTHIAZIDE
     Indication: HYPERTENSION
     Dosage: 12.5 MG, QD
     Route: 048
     Dates: start: 20201022

REACTIONS (1)
  - Cerebral haemorrhage [Recovered/Resolved]

NARRATIVE: CASE EVENT DATE: 20210507
